FAERS Safety Report 4325420-5 (Version None)
Quarter: 2004Q1

REPORT INFORMATION
  Report Type: 
  Country: None (occurrence: None)
  Receive Date: 20040329
  Receipt Date: 20031202
  Transmission Date: 20041129
  Serious: Yes (Other)
  Sender: FDA-Public Use
  Company Number: 200320439US

PATIENT
  Sex: Female
  Weight: 84 kg

DRUGS (11)
  1. ARAVA [Suspect]
     Indication: RHEUMATOID ARTHRITIS
     Route: 048
     Dates: start: 19981103, end: 19990304
  2. DELTASONE [Concomitant]
     Route: 048
     Dates: start: 19980409, end: 20020113
  3. METHOTREXATE [Concomitant]
     Route: 058
     Dates: start: 19980221
  4. BECONASE [Concomitant]
     Dosage: DOSE: 2 SPRAYS
     Route: 045
     Dates: start: 19970823
  5. SYNTHROID [Concomitant]
     Route: 048
     Dates: start: 19980624
  6. PREMARIN [Concomitant]
     Route: 048
     Dates: start: 19970823, end: 20010101
  7. FOLIC ACID [Concomitant]
     Route: 048
     Dates: start: 19981030, end: 20020301
  8. ULTRAM [Concomitant]
     Route: 048
     Dates: start: 19990923
  9. PEPCID [Concomitant]
     Route: 048
     Dates: start: 20000302
  10. CALCIUM [Concomitant]
     Route: 048
  11. TYLENOL (CAPLET) [Concomitant]

REACTIONS (8)
  - ALOPECIA [None]
  - CATARACT OPERATION [None]
  - DIARRHOEA [None]
  - HEPATIC STEATOSIS [None]
  - INJECTION SITE RASH [None]
  - INTERSTITIAL LUNG DISEASE [None]
  - KNEE ARTHROPLASTY [None]
  - T-CELL LYMPHOMA [None]
